FAERS Safety Report 18737239 (Version 3)
Quarter: 2021Q1

REPORT INFORMATION
  Report Type: Spontaneous
  Country: US (occurrence: US)
  Receive Date: 20210113
  Receipt Date: 20210305
  Transmission Date: 20210419
  Serious: Yes (Death, Other)
  Sender: FDA-Public Use
  Company Number: US-PFIZER INC-2020520160

PATIENT
  Age: 58 Year
  Sex: Male
  Weight: 158.8 kg

DRUGS (1)
  1. ANBESOL REGULAR STRENGTH GEL [Suspect]
     Active Substance: BENZOCAINE
     Indication: ANALGESIC THERAPY
     Route: 048

REACTIONS (7)
  - Pain in extremity [Unknown]
  - Death [Fatal]
  - Oral discomfort [Not Recovered/Not Resolved]
  - Oral pain [Recovering/Resolving]
  - Nausea [Unknown]
  - Swelling face [Not Recovered/Not Resolved]
  - Dyspnoea [Unknown]

NARRATIVE: CASE EVENT DATE: 20201225
